FAERS Safety Report 14211352 (Version 6)
Quarter: 2019Q4

REPORT INFORMATION
  Report Type: Report from Study
  Country: DE (occurrence: DE)
  Receive Date: 20171121
  Receipt Date: 20191211
  Transmission Date: 20200122
  Serious: No
  Sender: FDA-Public Use
  Company Number: DE-INCYTE CORPORATION-2017IN009956

PATIENT

DRUGS (14)
  1. CABERGOLINE. [Concomitant]
     Active Substance: CABERGOLINE
     Dosage: 0.5 MG, QW
     Route: 065
     Dates: start: 20171228
  2. L-THYROXINE [Concomitant]
     Active Substance: LEVOTHYROXINE
     Indication: HYPOTHYROIDISM
     Dosage: 75 MG, QD
     Route: 065
     Dates: start: 20030701
  3. PANTOPRAZOLE [Concomitant]
     Active Substance: PANTOPRAZOLE
     Indication: PROPHYLAXIS
     Dosage: 40 MG, QD
     Route: 065
  4. NOVAMINSULFON [Concomitant]
     Active Substance: METAMIZOLE
     Indication: PRODUCT USED FOR UNKNOWN INDICATION
     Dosage: 4 X 20
     Route: 065
     Dates: start: 20161027
  5. ETORICOXIB. [Concomitant]
     Active Substance: ETORICOXIB
     Indication: OSTEOARTHRITIS
     Dosage: 90 MG, QD
     Route: 065
  6. HIDROCORTISON [Concomitant]
     Active Substance: HYDROCORTISONE
     Dosage: 30 MG
     Route: 065
     Dates: start: 20190305
  7. INCB018424 [Suspect]
     Active Substance: RUXOLITINIB
     Indication: PRIMARY MYELOFIBROSIS
     Dosage: 20 MG/DAY/TWICE
     Route: 048
     Dates: start: 20160412
  8. DILTIAZEM. [Concomitant]
     Active Substance: DILTIAZEM
     Indication: HYPERTENSION
     Dosage: 240 MG, QD
     Route: 065
  9. LISINOPRIL. [Concomitant]
     Active Substance: LISINOPRIL
     Indication: HYPERTENSION
     Dosage: 20 MG, UNK
     Route: 065
  10. ACETYLSALICYLIC ACID [Concomitant]
     Active Substance: ASPIRIN
     Indication: PROPHYLAXIS
     Dosage: 100 MG, UNK
     Route: 065
  11. THOMAPYRIN [Concomitant]
     Indication: POST HERPETIC NEURALGIA
     Dosage: 250 MG, QD
     Route: 065
     Dates: start: 20160919
  12. ACICLOSTAD [Concomitant]
     Active Substance: ACYCLOVIR
     Indication: POST HERPETIC NEURALGIA
     Dosage: 800 MG, QD
     Route: 065
     Dates: start: 20150629, end: 20161024
  13. HIDROCORTISON [Concomitant]
     Active Substance: HYDROCORTISONE
     Indication: BLOOD CORTICOTROPHIN DECREASED
     Dosage: 40 MG, QD
     Route: 048
     Dates: start: 201004, end: 20170510
  14. CABERGOLINE. [Concomitant]
     Active Substance: CABERGOLINE
     Indication: POST HERPETIC NEURALGIA
     Dosage: 0.5 MG (EVERY 14 DAYS )
     Route: 065

REACTIONS (1)
  - Iron overload [Not Recovered/Not Resolved]

NARRATIVE: CASE EVENT DATE: 20170606
